FAERS Safety Report 18963168 (Version 1)
Quarter: 2021Q1

REPORT INFORMATION
  Report Type: Spontaneous
  Country: US (occurrence: US)
  Receive Date: 20210303
  Receipt Date: 20210303
  Transmission Date: 20210420
  Serious: Yes (Other)
  Sender: FDA-Public Use
  Company Number: NVSC2021US041933

PATIENT
  Sex: Female

DRUGS (2)
  1. POTASSIUM [Concomitant]
     Active Substance: POTASSIUM
     Dosage: UNK UNK, UNKNOWN
     Route: 065
  2. ENTRESTO [Suspect]
     Active Substance: SACUBITRIL\VALSARTAN
     Indication: PRODUCT USED FOR UNKNOWN INDICATION
     Dosage: UNK UNK, UNKNOWN
     Route: 065

REACTIONS (9)
  - Pneumonia [Unknown]
  - Respiratory arrest [Unknown]
  - Cardiac failure congestive [Unknown]
  - Coma [Recovered/Resolved]
  - Cardiac arrest [Unknown]
  - Atrial enlargement [Unknown]
  - Tachycardia [Unknown]
  - Pulmonary hypertension [Unknown]
  - Visual impairment [Unknown]
